FAERS Safety Report 4751753-4 (Version None)
Quarter: 2005Q3

REPORT INFORMATION
  Report Type: 
  Country: None (occurrence: None)
  Receive Date: 20050822
  Receipt Date: 20050810
  Transmission Date: 20060218
  Serious: Yes (Hospitalization)
  Sender: FDA-Public Use
  Company Number: 2005113723

PATIENT
  Age: 18 Year
  Sex: Male

DRUGS (3)
  1. ZIPRASIDONE (CAPS)  (ZIPRASIDONE) [Suspect]
     Indication: SCHIZOPHRENIA
     Dosage: 80 MG (40 MG, 2 IN 1 D), ORAL
     Route: 048
     Dates: start: 20050302, end: 20050303
  2. DIAZEPAM [Concomitant]
  3. ZUCLOPHENTHIXOL (ZUCLOPENTHIXOL) [Concomitant]

REACTIONS (10)
  - DISINHIBITION [None]
  - DYSPHORIA [None]
  - GRANDIOSITY [None]
  - HYPOMANIA [None]
  - INSOMNIA [None]
  - PSYCHOMOTOR HYPERACTIVITY [None]
  - SPEECH DISORDER [None]
  - SUICIDAL IDEATION [None]
  - THERAPY NON-RESPONDER [None]
  - TREATMENT NONCOMPLIANCE [None]
